FAERS Safety Report 7312008-7 (Version None)
Quarter: 2011Q1

REPORT INFORMATION
  Report Type: 
  Country: None (occurrence: None)
  Receive Date: 20110224
  Receipt Date: 20110131
  Transmission Date: 20110831
  Serious: No
  Sender: FDA-Public Use
  Company Number: US-B.I. PHARMACEUTICALS,INC./RIDGEFIELD-2011-BP-03132BP

PATIENT
  Sex: Male

DRUGS (3)
  1. PRADAXA [Suspect]
     Indication: ATRIAL FIBRILLATION
     Dosage: 300 MG
     Route: 048
     Dates: start: 20110124
  2. MVL [Concomitant]
     Indication: SUPPLEMENTATION THERAPY
  3. EMBRIL [Concomitant]
     Indication: RHEUMATOID ARTHRITIS

REACTIONS (3)
  - JOINT SWELLING [None]
  - SKIN HYPERTROPHY [None]
  - PRURITUS [None]
